FAERS Safety Report 26111293 (Version 1)
Quarter: 2025Q4

REPORT INFORMATION
  Report Type: Spontaneous
  Country: GB (occurrence: GB)
  Receive Date: 20251202
  Receipt Date: 20251202
  Transmission Date: 20260117
  Serious: Yes (Other)
  Sender: ACCORD
  Company Number: None

PATIENT
  Sex: Female

DRUGS (3)
  1. PACLITAXEL [Suspect]
     Active Substance: PACLITAXEL
     Indication: Breast cancer
     Dosage: 132MG - IV INFUSION 1 HOUR
  2. DEXAMETHASONE [Concomitant]
     Active Substance: DEXAMETHASONE
  3. CYCLIZINE [Concomitant]
     Active Substance: CYCLIZINE

REACTIONS (5)
  - Fatigue [Unknown]
  - Abdominal pain upper [Unknown]
  - Vaginal haemorrhage [Unknown]
  - Feeling hot [Unknown]
  - Paraesthesia [Unknown]

NARRATIVE: CASE EVENT DATE: 20251118
